FAERS Safety Report 4773999-1 (Version None)
Quarter: 2005Q3

REPORT INFORMATION
  Report Type: 
  Country: None (occurrence: None)
  Receive Date: 20050919
  Receipt Date: 20050906
  Transmission Date: 20060218
  Serious: Yes (Death, Hospitalization)
  Sender: FDA-Public Use
  Company Number: US-2005-006979

PATIENT
  Age: 75 Year
  Sex: Female

DRUGS (10)
  1. BETASERON [Suspect]
     Indication: PROGRESSIVE MULTIPLE SCLEROSIS
     Dosage: SUBCUTANEOUS
     Route: 058
     Dates: start: 19950406, end: 20030613
  2. TYLENOL [Concomitant]
  3. LASIX [Concomitant]
  4. SYNTHROID [Concomitant]
  5. ALDACTONE [Concomitant]
  6. REGLAN /USA/ (METOCLOPRAMIDE HYDROCHLORIDE) [Concomitant]
  7. QUININE SULFATE [Concomitant]
  8. CLONAZEPAM [Concomitant]
  9. FIBERCON (POLYCARBOPHIL CALCIUM) [Concomitant]
  10. CIPROFLOXACIN HCL [Concomitant]

REACTIONS (13)
  - ASCITES [None]
  - DISORIENTATION [None]
  - HEPATORENAL SYNDROME [None]
  - HYPONATRAEMIA [None]
  - ILEUS [None]
  - MALNUTRITION [None]
  - MULTIPLE SCLEROSIS RELAPSE [None]
  - PEPTIC ULCER PERFORATION [None]
  - PERITONITIS BACTERIAL [None]
  - PNEUMONIA KLEBSIELLA [None]
  - RASH [None]
  - REFUSAL OF TREATMENT BY PATIENT [None]
  - RESPIRATORY FAILURE [None]
